FAERS Safety Report 11893461 (Version 2)
Quarter: 2016Q1

REPORT INFORMATION
  Report Type: Spontaneous
  Country: US (occurrence: US)
  Receive Date: 20160106
  Receipt Date: 20160302
  Transmission Date: 20160526
  Serious: No
  Sender: FDA-Public Use
  Company Number: PHEH2016US000514

PATIENT

DRUGS (1)
  1. ESTRADIOL. [Suspect]
     Active Substance: ESTRADIOL
     Indication: PRODUCT USED FOR UNKNOWN INDICATION
     Dosage: 0.075 MG, QD
     Route: 065
     Dates: start: 20151215

REACTIONS (5)
  - Hormone level abnormal [Unknown]
  - General physical health deterioration [Unknown]
  - Menopausal symptoms [Unknown]
  - Wrong technique in product usage process [Unknown]
  - Skin reaction [Unknown]
